FAERS Safety Report 12643681 (Version 1)
Quarter: 2016Q3

REPORT INFORMATION
  Report Type: Spontaneous
  Country: CN (occurrence: CN)
  Receive Date: 20160811
  Receipt Date: 20160811
  Transmission Date: 20161109
  Serious: Yes (Hospitalization)
  Sender: FDA-Public Use
  Company Number: CN-BAYER-2016-151032

PATIENT
  Age: 74 Year
  Sex: Female
  Weight: 55 kg

DRUGS (1)
  1. BAYASPIRIN [Suspect]
     Active Substance: ASPIRIN
     Indication: CORONARY ARTERY DISEASE
     Dosage: 0.1 G, QD
     Route: 048
     Dates: start: 20130419, end: 20160419

REACTIONS (1)
  - Coagulation time prolonged [Recovering/Resolving]

NARRATIVE: CASE EVENT DATE: 20160419
